FAERS Safety Report 8963854 (Version 1)
Quarter: 2012Q4

REPORT INFORMATION
  Report Type: 
  Country: US (occurrence: US)
  Receive Date: 20121214
  Receipt Date: 20121214
  Transmission Date: 20130627
  Serious: Yes (Other)
  Sender: FDA-Public Use
  Company Number: US-PFIZER INC-2012315370

PATIENT
  Age: 53 Year
  Sex: Female
  Weight: 102.04 kg

DRUGS (6)
  1. LIPITOR [Suspect]
     Indication: HIGH CHOLESTEROL
     Dosage: 40 mg, once a day
     Route: 048
  2. PLAVIX [Concomitant]
     Dosage: UNK
  3. GLUCOPHAGE [Concomitant]
     Indication: DIABETES
     Dosage: UNK
  4. XANAX [Concomitant]
     Indication: PANIC ATTACKS
     Dosage: UNK
     Dates: start: 2009
  5. ASPIRIN [Concomitant]
     Indication: HEART DISORDER
     Dosage: UNK
  6. LOPRESSOR [Concomitant]
     Dosage: UNK

REACTIONS (1)
  - Cardiac disorder [Unknown]
